FAERS Safety Report 4404530-8 (Version None)
Quarter: 2004Q3

REPORT INFORMATION
  Report Type: 
  Country: None (occurrence: None)
  Receive Date: 20040722
  Receipt Date: 20040706
  Transmission Date: 20050211
  Serious: Yes (Hospitalization)
  Sender: FDA-Public Use
  Company Number: PT-AMGEN-UK082393

PATIENT
  Sex: Female
  Weight: 62.5 kg

DRUGS (8)
  1. ARANESP [Suspect]
     Indication: RENAL TRANSPLANT
     Route: 058
     Dates: start: 20040121
  2. IMURAN [Concomitant]
     Dates: start: 20040601
  3. PREDNISONE [Concomitant]
     Dates: start: 20040114
  4. CARVEDILOL [Concomitant]
     Dates: start: 20040201
  5. PANTOPRAZOLE [Concomitant]
  6. MYCOPHENOLATE MOFETIL [Concomitant]
     Dates: start: 20040114, end: 20040501
  7. TACROLIMUS [Concomitant]
     Route: 048
     Dates: start: 20040114
  8. PERINDOPRIL [Concomitant]
     Dates: start: 20040201

REACTIONS (3)
  - ANAEMIA [None]
  - BONE MARROW DEPRESSION [None]
  - PROTEINURIA [None]
